FAERS Safety Report 5789167-0 (Version None)
Quarter: 2008Q2

REPORT INFORMATION
  Report Type: 
  Country: None (occurrence: None)
  Receive Date: 20080625
  Receipt Date: 20080625
  Transmission Date: 20081010
  Serious: Yes (Hospitalization)
  Sender: FDA-Public Use
  Company Number: None

PATIENT
  Sex: Female
  Weight: 76 kg

DRUGS (15)
  1. CYTARABINE [Suspect]
     Dosage: 185 MG
     Dates: end: 20071127
  2. ETOPOSIDE [Suspect]
     Dosage: 185 MG
     Dates: end: 20071123
  3. ACETOPMETAPHIN [Concomitant]
  4. ACYCLOVIR SODIUM [Concomitant]
  5. BUPROPION HCL [Concomitant]
  6. DEXAMETHASONE [Concomitant]
  7. DIPHENHYDRAMINE HCL [Concomitant]
  8. FILGRASTIM [Concomitant]
  9. LEVETIRACETAM [Concomitant]
  10. LORAZEPAM [Concomitant]
  11. MEROPENUM [Concomitant]
  12. NYSTATIN [Concomitant]
  13. OXYCODONE HCL [Concomitant]
  14. VANCOMYCIN [Concomitant]
  15. CASPOFUNGIN [Concomitant]

REACTIONS (13)
  - ASPIRATION TRACHEAL ABNORMAL [None]
  - BRONCHIAL SECRETION RETENTION [None]
  - CEREBRAL HAEMORRHAGE [None]
  - CONVULSION [None]
  - LEUKOSTASIS [None]
  - MENTAL STATUS CHANGES [None]
  - MYOPATHY [None]
  - PERICARDIAL EFFUSION [None]
  - PNEUMONIA [None]
  - PULMONARY OEDEMA [None]
  - RESPIRATORY FAILURE [None]
  - STAPHYLOCOCCAL INFECTION [None]
  - TACHYCARDIA [None]
